FAERS Safety Report 23870301 (Version 1)
Quarter: 2024Q2

REPORT INFORMATION
  Report Type: Spontaneous
  Country: CN (occurrence: CN)
  Receive Date: 20240517
  Receipt Date: 20240517
  Transmission Date: 20240716
  Serious: Yes (Hospitalization, Other)
  Sender: FDA-Public Use
  Company Number: CN-TAKEDA-2024TUS047423

PATIENT
  Age: 30 Year
  Sex: Female
  Weight: 65 kg

DRUGS (7)
  1. ADCETRIS [Suspect]
     Active Substance: BRENTUXIMAB VEDOTIN
     Indication: Lymphoma
     Dosage: 100 MILLIGRAM, QD
     Route: 041
     Dates: start: 20240316, end: 20240316
  2. VINCRISTINE SULFATE [Suspect]
     Active Substance: VINCRISTINE SULFATE
     Indication: Lymphoma
     Dosage: 2 MILLIGRAM, QD
     Route: 041
     Dates: start: 20240324, end: 20240324
  3. ETOPOSIDE [Suspect]
     Active Substance: ETOPOSIDE
     Indication: Lymphoma
     Dosage: 0.30 GRAM, QD
     Route: 041
     Dates: start: 20240317, end: 20240319
  4. CYCLOPHOSPHAMIDE [Suspect]
     Active Substance: CYCLOPHOSPHAMIDE
     Indication: Lymphoma
     Dosage: 2 GRAM, QD
     Route: 041
     Dates: start: 20240317, end: 20240317
  5. BLEOMYCIN HYDROCHLORIDE [Suspect]
     Active Substance: BLEOMYCIN HYDROCHLORIDE
     Indication: Lymphoma
     Dosage: UNK UNK, QD
     Route: 041
     Dates: start: 20240324, end: 20240324
  6. PIRARUBICIN HYDROCHLORIDE [Suspect]
     Active Substance: PIRARUBICIN HYDROCHLORIDE
     Indication: Lymphoma
     Dosage: 60 MILLIGRAM, QD
     Route: 041
     Dates: start: 20240317, end: 20240317
  7. MESNA [Suspect]
     Active Substance: MESNA
     Indication: Lymphoma
     Dosage: 0.40 GRAM, TID
     Route: 042
     Dates: start: 20240317, end: 20240317

REACTIONS (1)
  - Myelosuppression [Recovering/Resolving]

NARRATIVE: CASE EVENT DATE: 20240328
